FAERS Safety Report 18865268 (Version 1)
Quarter: 2021Q1

REPORT INFORMATION
  Report Type: Spontaneous
  Country: US (occurrence: US)
  Receive Date: 20210208
  Receipt Date: 20210208
  Transmission Date: 20210420
  Serious: No
  Sender: FDA-Public Use
  Company Number: US-SUNOVION-2021SUN000238

PATIENT
  Sex: Male

DRUGS (2)
  1. LATUDA [Suspect]
     Active Substance: LURASIDONE HYDROCHLORIDE
     Dosage: 40 MG
     Route: 048
     Dates: start: 202010
  2. LATUDA [Suspect]
     Active Substance: LURASIDONE HYDROCHLORIDE
     Indication: BIPOLAR DISORDER
     Dosage: 20 MG UNK
     Route: 048

REACTIONS (6)
  - Fine motor skill dysfunction [Not Recovered/Not Resolved]
  - Apathy [Not Recovered/Not Resolved]
  - Drug ineffective [Unknown]
  - Somnolence [Recovered/Resolved]
  - Restlessness [Not Recovered/Not Resolved]
  - Libido decreased [Unknown]
